FAERS Safety Report 12858503 (Version 1)
Quarter: 2016Q4

REPORT INFORMATION
  Report Type: Spontaneous
  Country: US (occurrence: US)
  Receive Date: 20161018
  Receipt Date: 20161018
  Transmission Date: 20170207
  Serious: No
  Sender: FDA-Public Use
  Company Number: US-PFIZER INC-2016484547

PATIENT
  Age: 84 Year
  Sex: Female
  Weight: 50 kg

DRUGS (1)
  1. LYRICA [Suspect]
     Active Substance: PREGABALIN
     Indication: HERPES ZOSTER
     Dosage: 100 MG, 2X/DAY (100MG CAPSULE IN THE MORNING AND 100MG IN THE EVENING)
     Route: 048
     Dates: start: 2016

REACTIONS (2)
  - Diarrhoea [Unknown]
  - Faeces discoloured [Unknown]

NARRATIVE: CASE EVENT DATE: 20161015
